FAERS Safety Report 21661804 (Version 1)
Quarter: 2022Q4

REPORT INFORMATION
  Report Type: Spontaneous
  Country: CA (occurrence: CA)
  Receive Date: 20221130
  Receipt Date: 20221130
  Transmission Date: 20230113
  Serious: Yes (Other)
  Sender: FDA-Public Use
  Company Number: CA-JNJFOC-20221148870

PATIENT

DRUGS (12)
  1. HYDROCORTISONE [Suspect]
     Active Substance: HYDROCORTISONE
     Indication: Product used for unknown indication
     Route: 065
  2. TYLENOL [Suspect]
     Active Substance: ACETAMINOPHEN
     Indication: Product used for unknown indication
     Route: 065
  3. ASPIRIN [Suspect]
     Active Substance: ASPIRIN
     Indication: Product used for unknown indication
     Route: 065
  4. LAMOTRIGINE [Suspect]
     Active Substance: LAMOTRIGINE
     Indication: Product used for unknown indication
     Route: 065
  5. BACLOFEN [Suspect]
     Active Substance: BACLOFEN
     Indication: Product used for unknown indication
     Route: 065
  6. MINERALS\VITAMINS [Suspect]
     Active Substance: MINERALS\VITAMINS
     Indication: Product used for unknown indication
     Route: 065
  7. CLOBETASOL PROPIONATE [Suspect]
     Active Substance: CLOBETASOL PROPIONATE
     Indication: Product used for unknown indication
     Route: 065
  8. LIPITOR [Suspect]
     Active Substance: ATORVASTATIN CALCIUM
     Indication: Product used for unknown indication
     Route: 065
  9. MELOXICAM [Suspect]
     Active Substance: MELOXICAM
     Indication: Product used for unknown indication
     Route: 065
  10. PROLIA [Suspect]
     Active Substance: DENOSUMAB
     Indication: Product used for unknown indication
     Route: 065
  11. TELMISARTAN [Suspect]
     Active Substance: TELMISARTAN
     Indication: Product used for unknown indication
     Route: 065
  12. VITAMIN D3 [Suspect]
     Active Substance: CHOLECALCIFEROL
     Indication: Product used for unknown indication
     Route: 065

REACTIONS (25)
  - Arthralgia [Recovered/Resolved]
  - Asthenia [Recovered/Resolved]
  - Back pain [Recovered/Resolved]
  - Burning sensation [Recovered/Resolved]
  - Cataract [Recovered/Resolved]
  - Cerebral disorder [Recovered/Resolved]
  - Depression [Recovered/Resolved]
  - Dizziness [Recovered/Resolved]
  - Dysuria [Recovered/Resolved]
  - Feeling abnormal [Recovered/Resolved]
  - Feeling cold [Recovered/Resolved]
  - Gait disturbance [Recovered/Resolved]
  - Headache [Recovered/Resolved]
  - Hip arthroplasty [Recovered/Resolved]
  - Hypertension [Recovered/Resolved]
  - Hypoacusis [Recovered/Resolved]
  - Hypoaesthesia [Recovered/Resolved]
  - Knee arthroplasty [Recovered/Resolved]
  - Mobility decreased [Recovered/Resolved]
  - Myalgia [Recovered/Resolved]
  - Myocardial infarction [Recovered/Resolved]
  - Neuropathy peripheral [Recovered/Resolved]
  - Pain in extremity [Recovered/Resolved]
  - Radiculopathy [Recovered/Resolved]
  - Syncope [Recovered/Resolved]
